FAERS Safety Report 18735149 (Version 1)
Quarter: 2021Q1

REPORT INFORMATION
  Report Type: Spontaneous
  Country: US (occurrence: US)
  Receive Date: 20210113
  Receipt Date: 20210113
  Transmission Date: 20210419
  Serious: Yes (Hospitalization)
  Sender: FDA-Public Use
  Company Number: None

PATIENT
  Age: 92 Year
  Sex: Female
  Weight: 57.3 kg

DRUGS (13)
  1. PREDNISONE 37.5 MG DAILY [Concomitant]
  2. CARVEDILOL 6.25 MG BID [Concomitant]
  3. COLCHICINE 0.6 MG DAILY [Concomitant]
  4. FUROSEMIDE 20 MG DAILY [Concomitant]
  5. LIDOCAINE PATCH 4% 2 PATCHES 12 HRS/DAY [Concomitant]
  6. OXYBUTYNIN 5 MG A.M. 10 MG P.M. [Concomitant]
  7. BAMLANIVIMAB. [Suspect]
     Active Substance: BAMLANIVIMAB
     Indication: SARS-COV-2 TEST POSITIVE
     Dosage: ?          OTHER FREQUENCY:ONCE;?
     Route: 042
     Dates: start: 20210108, end: 20210108
  8. ISOSORBIDE DINITRATE 5 MG TID [Concomitant]
  9. PANTOPRAZOLE 40 MG DAILY [Concomitant]
  10. DIGOXIN 125 MCG DAILY [Concomitant]
  11. PYRIDOSTIGMINE 60 MG TID [Concomitant]
  12. GABAPENTIN 200 MG TID [Concomitant]
     Active Substance: GABAPENTIN
  13. TAMSULOSIN 0.4 MG DAILY [Concomitant]

REACTIONS (3)
  - Cyanosis [None]
  - Unresponsive to stimuli [None]
  - Sepsis [None]

NARRATIVE: CASE EVENT DATE: 20210108
